FAERS Safety Report 10707508 (Version 1)
Quarter: 2015Q1

REPORT INFORMATION
  Report Type: Spontaneous
  Country: US (occurrence: None)
  Receive Date: 20150112
  Receipt Date: 20150112
  Transmission Date: 20150721
  Serious: Yes (Hospitalization)
  Sender: FDA-Public Use
  Company Number: None

PATIENT
  Age: 56 Year
  Sex: Female

DRUGS (1)
  1. ORENCIA [Suspect]
     Active Substance: ABATACEPT
     Indication: RHEUMATOID ARTHRITIS
     Route: 058
     Dates: start: 20130423, end: 20141222

REACTIONS (5)
  - No therapeutic response [None]
  - Aspiration [None]
  - Procedural complication [None]
  - Influenza [None]
  - Infection [None]

NARRATIVE: CASE EVENT DATE: 20141222
